FAERS Safety Report 5170580-X (Version None)
Quarter: 2006Q4

REPORT INFORMATION
  Report Type: 
  Country: None (occurrence: None)
  Receive Date: 20061205
  Receipt Date: 20061124
  Transmission Date: 20070319
  Serious: Yes (Hospitalization)
  Sender: FDA-Public Use
  Company Number: 2006105556

PATIENT
  Age: 79 Year
  Sex: Male
  Weight: 70 kg

DRUGS (9)
  1. DOXAZOSIN MESYLATE [Suspect]
     Indication: PROSTATE CANCER
     Dosage: 1 DOSE-FORM (EVERY DAY), ORAL
     Route: 048
     Dates: start: 20060701, end: 20060823
  2. DECAPEPTYL -S LOW RELEASE (TRIPTORELIN ACETATE) [Suspect]
     Indication: PROSTATE CANCER
     Dosage: 11.25 MG (11.25 MG, SINGLE INJECTION), INTRAMUSCULAR
     Route: 030
     Dates: start: 20060211, end: 20060211
  3. DECAPEPTYL -S LOW RELEASE (TRIPTORELIN ACETATE) [Suspect]
     Indication: PROSTATE CANCER
     Dosage: 11.25 MG (11.25 MG, SINGLE INJECTION), INTRAMUSCULAR
     Route: 030
     Dates: start: 20060511, end: 20060511
  4. DECAPEPTYL -S LOW RELEASE (TRIPTORELIN ACETATE) [Suspect]
     Indication: PROSTATE CANCER
     Dosage: 11.25 MG (11.25 MG, SINGLE INJECTION), INTRAMUSCULAR
     Route: 030
     Dates: start: 20060802, end: 20060802
  5. DAFLON (DIOSMIN) [Concomitant]
  6. RUTIN TAB [Concomitant]
  7. LOPERAMIDE HCL [Concomitant]
  8. NIFUROXAZIDE (NIFUROXAZIDE) [Concomitant]
  9. ESBERIVEN (MELILOT, RUTOSIDE) [Concomitant]

REACTIONS (5)
  - ASTHENIA [None]
  - DYSPNOEA [None]
  - HAEMOLYTIC ANAEMIA [None]
  - LYMPHOPENIA [None]
  - MARROW HYPERPLASIA [None]
